FAERS Safety Report 8848329 (Version 1)
Quarter: 2012Q4

REPORT INFORMATION
  Report Type: 
  Country: CO (occurrence: CO)
  Receive Date: 20121019
  Receipt Date: 20121019
  Transmission Date: 20130627
  Serious: Yes (Other)
  Sender: FDA-Public Use
  Company Number: CO-AMGEN-COLSP2012066369

PATIENT
  Age: 56 Year
  Sex: Female

DRUGS (12)
  1. ENBREL [Suspect]
     Indication: RHEUMATOID ARTHRITIS
     Dosage: 50 mg, weekly
     Route: 042
     Dates: start: 20090608
  2. ENBREL [Suspect]
     Dosage: 50 mg, 2 times/wk
     Dates: end: 20100407
  3. ENBREL [Suspect]
     Dosage: 50 mg, qwk
     Route: 058
     Dates: start: 20100407, end: 20110907
  4. ENBREL [Suspect]
     Dosage: 50 mg, weekly
     Route: 042
     Dates: start: 20111214, end: 20120314
  5. METHOTREXATE SODIUM [Suspect]
     Indication: RHEUMATOID ARTHRITIS
     Dosage: 2.5 mg, 6 per week
     Route: 048
     Dates: start: 20100407, end: 20110331
  6. LEFLUNOMIDE [Suspect]
     Indication: RHEUMATOID ARTHRITIS
     Dosage: 20 mg, 1x/day
     Dates: start: 20110331
  7. LEFLUNOMIDE [Suspect]
     Dosage: 20 mg, 1x/day
  8. ETANERCEPT [Concomitant]
     Dosage: 50 mg, 2x/week
     Dates: end: 20100407
  9. PENICILINA G                       /00000903/ [Concomitant]
     Dosage: 250 mg, 2x/day
     Route: 048
     Dates: start: 20100407
  10. FOLIC ACID [Concomitant]
     Dosage: 1 mg, 1x/day
     Dates: start: 20100407
  11. PREDNISOLONE [Concomitant]
     Dosage: 5 mg, 1x/day
     Dates: end: 20100427
  12. CALCIUM CARBONATE/COLECALCIFEROL [Concomitant]
     Dosage: 600 +200 mg/UI

REACTIONS (21)
  - Epistaxis [Not Recovered/Not Resolved]
  - Lip ulceration [Not Recovered/Not Resolved]
  - Pruritus [Not Recovered/Not Resolved]
  - Rash generalised [Not Recovered/Not Resolved]
  - Sjogren^s syndrome [Not Recovered/Not Resolved]
  - Urinary tract infection [Not Recovered/Not Resolved]
  - Pharyngotonsillitis [Not Recovered/Not Resolved]
  - Incorrect route of drug administration [Not Recovered/Not Resolved]
  - Androgen deficiency [Not Recovered/Not Resolved]
  - Dyspepsia [Not Recovered/Not Resolved]
  - Headache [Not Recovered/Not Resolved]
  - Skin injury [Not Recovered/Not Resolved]
  - Oropharyngeal pain [Not Recovered/Not Resolved]
  - Oedema peripheral [Not Recovered/Not Resolved]
  - Genital discharge [Not Recovered/Not Resolved]
  - Vulvovaginal pruritus [Not Recovered/Not Resolved]
  - Back pain [Not Recovered/Not Resolved]
  - Musculoskeletal pain [Not Recovered/Not Resolved]
  - Arthralgia [Not Recovered/Not Resolved]
  - Upper respiratory tract infection [Not Recovered/Not Resolved]
  - Neutropenia [Not Recovered/Not Resolved]
